FAERS Safety Report 4837574-2 (Version None)
Quarter: 2005Q4

REPORT INFORMATION
  Report Type: 
  Country: None (occurrence: None)
  Receive Date: 20051122
  Receipt Date: 20051103
  Transmission Date: 20060501
  Serious: Yes (Hospitalization)
  Sender: FDA-Public Use
  Company Number: 2005002197

PATIENT
  Age: 54 Year
  Sex: Male

DRUGS (2)
  1. TARCEVA [Suspect]
     Indication: PANCREATIC CARCINOMA
     Dosage: 150 MG (QD); ORAL
     Route: 048
     Dates: start: 20050607
  2. GEMCITABINE [Concomitant]

REACTIONS (2)
  - CONVULSION [None]
  - DISEASE PROGRESSION [None]
